FAERS Safety Report 9633491 (Version 1)
Quarter: 2013Q4

REPORT INFORMATION
  Report Type: Spontaneous
  Country: US (occurrence: US)
  Receive Date: 20131021
  Receipt Date: 20131021
  Transmission Date: 20140711
  Serious: No
  Sender: FDA-Public Use
  Company Number: US-BAUSCH-BL-2012-002138

PATIENT
  Sex: Male

DRUGS (2)
  1. BEPREVE (BEPOTASTINE BESILATE OPHTHALMIC SOLUTION 1.5%) [Suspect]
     Indication: CONJUNCTIVITIS ALLERGIC
     Dosage: 1 DROP; TWICE A DAY; OPHTHALMIC
     Route: 047
     Dates: start: 2012, end: 2012
  2. TRAVOPROST [Concomitant]
     Indication: OPEN ANGLE GLAUCOMA
     Dosage: 1 DROP; AT BEDTIME; OPHTHALMIC
     Route: 047

REACTIONS (3)
  - Eye swelling [Recovered/Resolved]
  - Eye pruritus [Recovered/Resolved]
  - Eye discharge [Recovered/Resolved]
